FAERS Safety Report 18052940 (Version 1)
Quarter: 2020Q3

REPORT INFORMATION
  Report Type: Spontaneous
  Country: HR (occurrence: HR)
  Receive Date: 20200721
  Receipt Date: 20200721
  Transmission Date: 20201103
  Serious: Yes (Other)
  Sender: FDA-Public Use
  Company Number: HR-BRISTOL-MYERS SQUIBB COMPANY-BMS-2020-058533

PATIENT
  Age: 71 Year
  Sex: Female
  Weight: 80 kg

DRUGS (8)
  1. SKUDEXA [Suspect]
     Active Substance: DEXKETOPROFEN\TRAMADOL
     Indication: OSTEOARTHRITIS
     Dosage: 1 DOSAGE FORM, BID
     Route: 048
     Dates: start: 202003
  2. TRIPLIXAM [Concomitant]
     Active Substance: AMLODIPINE BESYLATE\INDAPAMIDE\PERINDOPRIL ARGININE
     Indication: HYPERTENSION
     Dosage: 1 DOSAGE FORM, QD
     Route: 048
  3. ELIQUIS [Suspect]
     Active Substance: APIXABAN
     Indication: CEREBROVASCULAR ACCIDENT PROPHYLAXIS
     Dosage: 5 MILLIGRAM, BID
     Route: 048
     Dates: start: 201906
  4. KALINOR [POTASSIUM CHLORIDE] [Concomitant]
     Active Substance: POTASSIUM CHLORIDE
     Indication: MITRAL VALVE PROLAPSE
     Dosage: 1 DOSAGE FORM, PER DAY
     Route: 048
  5. PREXANIL [Concomitant]
     Active Substance: PERINDOPRIL
     Indication: HYPERTENSION
     Dosage: 5 MILLIGRAM, QD
     Route: 048
  6. CONCOR [Concomitant]
     Active Substance: BISOPROLOL FUMARATE
     Indication: ATRIAL FIBRILLATION
     Dosage: 5 MILLIGRAM, BID
     Route: 048
  7. FURSEMID [FUROSEMIDE] [Concomitant]
     Active Substance: FUROSEMIDE
     Indication: MITRAL VALVE PROLAPSE
     Dosage: 40 MILLIGRAM, PER DAY
     Route: 048
  8. MOKSONIDIN BELUPO [Concomitant]
     Indication: HYPERTENSION
     Dosage: 0.2 MILLIGRAM, PER DAY
     Route: 048

REACTIONS (3)
  - Arthropathy [Unknown]
  - Contusion [Recovering/Resolving]
  - Haemorrhage [Unknown]

NARRATIVE: CASE EVENT DATE: 2020
